FAERS Safety Report 6354680-4 (Version None)
Quarter: 2009Q3

REPORT INFORMATION
  Report Type: 
  Country: None (occurrence: None)
  Receive Date: 20090909
  Receipt Date: 20090826
  Transmission Date: 20100115
  Serious: Yes (Hospitalization, Other)
  Sender: FDA-Public Use
  Company Number: 2009-195542-NL

PATIENT
  Age: 27 Year
  Sex: Female
  Weight: 74.8435 kg

DRUGS (2)
  1. NUVARING [Suspect]
     Indication: CONTRACEPTION
     Dates: start: 20040224, end: 20040727
  2. ALEVE [Concomitant]

REACTIONS (12)
  - ARTERIAL THROMBOSIS [None]
  - BLOOD DISORDER [None]
  - BRONCHITIS [None]
  - CEREBROVASCULAR ACCIDENT [None]
  - EMBOLISM VENOUS [None]
  - FACTOR V DEFICIENCY [None]
  - HYPERCOAGULATION [None]
  - NASOPHARYNGITIS [None]
  - PHARYNGITIS [None]
  - RHINITIS [None]
  - SINUSITIS [None]
  - UPPER RESPIRATORY TRACT INFECTION [None]
